FAERS Safety Report 19899343 (Version 1)
Quarter: 2021Q3

REPORT INFORMATION
  Report Type: Spontaneous
  Country: US (occurrence: US)
  Receive Date: 20210929
  Receipt Date: 20210929
  Transmission Date: 20211014
  Serious: Yes (Other)
  Sender: FDA-Public Use
  Company Number: None

PATIENT
  Age: 67 Year
  Sex: Female
  Weight: 81 kg

DRUGS (7)
  1. COENZYME Q10 [Concomitant]
     Active Substance: DIETARY SUPPLEMENT\UBIDECARENONE
  2. ROSUVOSTATIN [Concomitant]
  3. BENADRYL [Concomitant]
     Active Substance: DIPHENHYDRAMINE HYDROCHLORIDE
  4. METHYLPREDNISOLONE. [Suspect]
     Active Substance: METHYLPREDNISOLONE
  5. LIDOCAINE. [Suspect]
     Active Substance: LIDOCAINE
     Indication: ARTHRALGIA
     Dosage: ?          OTHER ROUTE:INJECTED INTO THE KNEE JOINT, I BELIEVE?
     Dates: start: 20210803, end: 20210803
  6. BUPIVACAINE. [Suspect]
     Active Substance: BUPIVACAINE
  7. CLARITIN [Concomitant]
     Active Substance: LORATADINE

REACTIONS (7)
  - Middle insomnia [None]
  - Hypersensitivity [None]
  - Throat irritation [None]
  - Urticaria [None]
  - Malaise [None]
  - Dyspnoea [None]
  - Product formulation issue [None]

NARRATIVE: CASE EVENT DATE: 20210803
